FAERS Safety Report 6327286-0 (Version None)
Quarter: 2009Q3

REPORT INFORMATION
  Report Type: 
  Country: None (occurrence: None)
  Receive Date: 20090825
  Receipt Date: 20090820
  Transmission Date: 20100115
  Serious: Yes (Hospitalization)
  Sender: FDA-Public Use
  Company Number: US-MERCK-0908USA02335

PATIENT
  Age: 54 Year
  Sex: Female

DRUGS (6)
  1. HYZAAR [Suspect]
     Indication: HYPERTENSION
     Route: 048
     Dates: start: 19980101
  2. HYZAAR [Suspect]
     Route: 048
  3. HYZAAR [Suspect]
     Route: 048
     Dates: start: 20090809
  4. SYNTHROID [Concomitant]
     Route: 065
  5. NORVASC [Concomitant]
     Route: 065
  6. VALIUM [Concomitant]
     Route: 065

REACTIONS (3)
  - BLOOD POTASSIUM DECREASED [None]
  - BLOOD SODIUM ABNORMAL [None]
  - BLOOD SODIUM DECREASED [None]
